FAERS Safety Report 9044904 (Version 1)
Quarter: 2013Q1

REPORT INFORMATION
  Report Type: Report from Study
  Country: JP (occurrence: JP)
  Receive Date: 20130130
  Receipt Date: 20130130
  Transmission Date: 20140127
  Serious: Yes (Other)
  Sender: FDA-Public Use
  Company Number: JP-GLAXOSMITHKLINE-B0860277A

PATIENT
  Age: 67 None
  Sex: Female

DRUGS (5)
  1. SERETIDE [Suspect]
     Indication: ASTHMA
     Dosage: 500MCG TWICE PER DAY
     Route: 055
     Dates: start: 20081014
  2. SINGULAIR [Concomitant]
     Indication: ASTHMA
     Route: 048
  3. THEODUR [Concomitant]
     Indication: ASTHMA
     Route: 048
  4. MEPTIN AIR [Concomitant]
     Indication: ASTHMA
     Route: 055
     Dates: start: 20081014
  5. CINBERAMIN [Concomitant]
     Route: 048
     Dates: end: 20081124

REACTIONS (4)
  - Gastritis atrophic [Recovering/Resolving]
  - Polyp [Recovering/Resolving]
  - Dyspepsia [Recovering/Resolving]
  - Nausea [Recovering/Resolving]
